FAERS Safety Report 26146387 (Version 1)
Quarter: 2025Q4

REPORT INFORMATION
  Report Type: Spontaneous
  Country: US (occurrence: US)
  Receive Date: 20251211
  Receipt Date: 20251211
  Transmission Date: 20260118
  Serious: No
  Sender: SANDOZ
  Company Number: US-SANDOZ-SDZ2025US093322

PATIENT
  Sex: Male

DRUGS (1)
  1. ALBUTEROL SULFATE [Suspect]
     Active Substance: ALBUTEROL SULFATE
     Indication: Product used for unknown indication
     Dosage: 90 MCG/DOS  200 DOS
     Route: 055

REACTIONS (6)
  - Circumstance or information capable of leading to medication error [Unknown]
  - Exposure via skin contact [Unknown]
  - Device issue [Unknown]
  - Device breakage [Unknown]
  - Device physical property issue [Unknown]
  - Accidental exposure to product [Unknown]
